FAERS Safety Report 5390415-X (Version None)
Quarter: 2007Q3

REPORT INFORMATION
  Report Type: 
  Country: None (occurrence: None)
  Receive Date: 20070718
  Receipt Date: 20070226
  Transmission Date: 20080115
  Serious: No
  Sender: FDA-Public Use
  Company Number: US-KINGPHARMUSA00001-K200700219

PATIENT
  Sex: Female
  Weight: 68.027 kg

DRUGS (6)
  1. LEVOXYL [Suspect]
     Indication: HYPOTHYROIDISM
     Dosage: 25 MCG, QD
     Route: 048
     Dates: start: 20070101
  2. LEVOXYL [Suspect]
     Dosage: 50 MCG, QD
     Route: 048
     Dates: end: 20070209
  3. ASACOL [Concomitant]
     Indication: COLITIS
     Dosage: UNK, QD
     Route: 048
  4. NORTRIPTYLINE HCL [Concomitant]
     Indication: MIGRAINE
     Dosage: UNK, QD
     Route: 048
     Dates: start: 20060101
  5. PREMARIN [Concomitant]
     Indication: HORMONE REPLACEMENT THERAPY
     Dosage: UNK, QD
     Route: 048
  6. TOPAMAX [Concomitant]
     Indication: MIGRAINE
     Dosage: UNK, QD
     Route: 048
     Dates: start: 20060101

REACTIONS (2)
  - DRUG INEFFECTIVE [None]
  - MIGRAINE [None]
